FAERS Safety Report 5805485-1 (Version None)
Quarter: 2008Q3

REPORT INFORMATION
  Report Type: 
  Country: None (occurrence: None)
  Receive Date: 20080710
  Receipt Date: 20080701
  Transmission Date: 20090109
  Serious: Yes (Other)
  Sender: FDA-Public Use
  Company Number: BE-BAYER-200820054GPV

PATIENT
  Age: 70 Year
  Sex: Male
  Weight: 70 kg

DRUGS (12)
  1. CIPROFLOXACIN [Suspect]
     Indication: INFECTION PROPHYLAXIS
     Dosage: TOTAL DAILY DOSE: 500 MG
     Route: 048
     Dates: start: 20080601, end: 20080601
  2. CIPROFLOXACIN [Suspect]
     Dosage: TOTAL DAILY DOSE: 1000 MG
     Route: 048
     Dates: start: 20080602, end: 20080604
  3. COVERSYL [Concomitant]
     Indication: BLOOD PRESSURE ABNORMAL
     Dosage: TOTAL DAILY DOSE: 4 MG
     Route: 048
     Dates: start: 20080204
  4. FOSAMAX [Concomitant]
     Indication: OSTEOPOROSIS
     Dosage: TOTAL DAILY DOSE: 10 MG
     Route: 048
     Dates: start: 20070819
  5. PROTHIADEN [Concomitant]
     Indication: DEPRESSED MOOD
     Dosage: TOTAL DAILY DOSE: 75 MG
     Route: 048
  6. D-CURE [Concomitant]
     Indication: OSTEOPOROSIS
     Route: 065
     Dates: start: 20070802
  7. TRADONAL [Concomitant]
     Indication: DRUG USE FOR UNKNOWN INDICATION
     Route: 065
  8. SIPRALEXA [Concomitant]
     Indication: DRUG USE FOR UNKNOWN INDICATION
     Route: 048
  9. SIMVASTATIN [Concomitant]
     Indication: DRUG USE FOR UNKNOWN INDICATION
     Route: 048
  10. XANAX [Concomitant]
     Indication: DRUG USE FOR UNKNOWN INDICATION
     Route: 048
  11. CALCIUM CARBONATE [Concomitant]
     Indication: DRUG USE FOR UNKNOWN INDICATION
     Route: 065
  12. MERCK ASA [Concomitant]
     Indication: DRUG USE FOR UNKNOWN INDICATION
     Route: 065

REACTIONS (5)
  - HALLUCINATION [None]
  - PYREXIA [None]
  - SEPSIS [None]
  - TENDON PAIN [None]
  - TENDONITIS [None]
